FAERS Safety Report 10855072 (Version 1)
Quarter: 2015Q1

REPORT INFORMATION
  Report Type: Spontaneous
  Country: NO (occurrence: None)
  Receive Date: 20150218
  Receipt Date: 20150218
  Transmission Date: 20150721
  Serious: Yes (Life-Threatening)
  Sender: FDA-Public Use
  Company Number: 2015051352

PATIENT
  Age: 68 Year
  Sex: Male

DRUGS (9)
  1. FRAGMIN [Suspect]
     Active Substance: DALTEPARIN SODIUM
     Indication: ANTICOAGULANT THERAPY
     Route: 051
     Dates: start: 20141118, end: 20141226
  2. ARANESP [Concomitant]
     Active Substance: DARBEPOETIN ALFA
  3. RENVELA (SEVELAMER) [Concomitant]
  4. SELO-ZOK (METOPROLOL SUCCINATE) [Concomitant]
  5. CORDARONE [Concomitant]
     Active Substance: AMIODARONE HYDROCHLORIDE
  6. ETALPHA (ALFACALCIDOL) [Concomitant]
  7. SOMAC (PANTOPRAZOLE SODIUM) [Concomitant]
  8. BURINEX (BUMETANIDE) [Concomitant]
  9. TRIATEC (RAMIPRIL) [Concomitant]
     Active Substance: RAMIPRIL

REACTIONS (1)
  - Blood pressure decreased [None]

NARRATIVE: CASE EVENT DATE: 20141215
